FAERS Safety Report 15048635 (Version 1)
Quarter: 2018Q2

REPORT INFORMATION
  Report Type: Spontaneous
  Country: FR (occurrence: FR)
  Receive Date: 20180622
  Receipt Date: 20180622
  Transmission Date: 20180711
  Serious: Yes (Hospitalization, Other)
  Sender: FDA-Public Use
  Company Number: FR-BRISTOL-MYERS SQUIBB COMPANY-BMS-2018-056314

PATIENT
  Age: 71 Year
  Sex: Male

DRUGS (3)
  1. AZACTAM [Suspect]
     Active Substance: AZTREONAM
     Indication: INFECTION
     Dosage: 1 G, 8 HOURS
     Route: 042
     Dates: start: 20180506
  2. CUBICIN [Suspect]
     Active Substance: DAPTOMYCIN
     Indication: INFECTION
     Dosage: 700 MG, 24 HOUR
     Route: 042
     Dates: start: 20180506, end: 20180606
  3. AMIKACINE                          /00391001/ [Concomitant]
     Active Substance: AMIKACIN
     Indication: ERYSIPELAS
     Dosage: 1T
     Route: 042

REACTIONS (1)
  - Neuropathy peripheral [Not Recovered/Not Resolved]

NARRATIVE: CASE EVENT DATE: 20180530
